FAERS Safety Report 6177173-6 (Version None)
Quarter: 2009Q2

REPORT INFORMATION
  Report Type: 
  Country: None (occurrence: None)
  Receive Date: 20090430
  Receipt Date: 20090430
  Transmission Date: 20091009
  Serious: No
  Sender: FDA-Public Use
  Company Number: None

PATIENT
  Age: 37 Year
  Sex: Female
  Weight: 79.3795 kg

DRUGS (2)
  1. OMEPRAZOLE [Suspect]
     Indication: DYSPEPSIA
     Dosage: 1 TABLET 1 TIME A DAY PO
     Route: 048
     Dates: start: 20090407, end: 20090421
  2. OMEPRAZOLE [Suspect]
     Indication: GASTROOESOPHAGEAL REFLUX DISEASE
     Dosage: 1 TABLET 1 TIME A DAY PO
     Route: 048
     Dates: start: 20090407, end: 20090421

REACTIONS (1)
  - PARAESTHESIA ORAL [None]
